FAERS Safety Report 4945077-X (Version None)
Quarter: 2006Q1

REPORT INFORMATION
  Report Type: 
  Country: None (occurrence: None)
  Receive Date: 20060316
  Receipt Date: 20060306
  Transmission Date: 20060701
  Serious: Yes (Hospitalization)
  Sender: FDA-Public Use
  Company Number: NSADSS2002023261

PATIENT
  Sex: Female

DRUGS (4)
  1. REMICADE [Suspect]
     Route: 041
  2. REMICADE [Suspect]
     Indication: RHEUMATOID ARTHRITIS
     Dosage: TOTAL 9 INFUSIONS
     Route: 041
  3. METHOTREXATE [Concomitant]
  4. CORTICOSTEROIDS [Concomitant]

REACTIONS (3)
  - PULMONARY TUBERCULOSIS [None]
  - RENAL FAILURE [None]
  - RENAL TUBULAR NECROSIS [None]
